FAERS Safety Report 6403221-1 (Version None)
Quarter: 2009Q4

REPORT INFORMATION
  Report Type: 
  Country: None (occurrence: None)
  Receive Date: 20091016
  Receipt Date: 20091007
  Transmission Date: 20100525
  Serious: Yes (Hospitalization)
  Sender: FDA-Public Use
  Company Number: JP-JNJFOC-20091002646

PATIENT
  Age: 67 Year
  Sex: Female

DRUGS (5)
  1. CRAVIT [Suspect]
     Route: 048
  2. CRAVIT [Suspect]
     Indication: PULMONARY TUBERCULOSIS
     Route: 048
  3. ADALAT CC [Suspect]
     Indication: HYPERTENSION
     Route: 048
  4. PREDNISOLONE [Suspect]
     Indication: DRUG USE FOR UNKNOWN INDICATION
     Route: 065
  5. TAKEPRON [Concomitant]
     Route: 065

REACTIONS (5)
  - CLONIC CONVULSION [None]
  - DIZZINESS [None]
  - DYSKINESIA [None]
  - MALAISE [None]
  - RENAL IMPAIRMENT [None]
